FAERS Safety Report 17663222 (Version 1)
Quarter: 2020Q2

REPORT INFORMATION
  Report Type: Spontaneous
  Country: GB (occurrence: GB)
  Receive Date: 20200413
  Receipt Date: 20200413
  Transmission Date: 20200713
  Serious: Yes (Other)
  Sender: FDA-Public Use
  Company Number: GB-ADVANZ PHARMA-202004002263

PATIENT

DRUGS (10)
  1. PREDNISOLONE. [Suspect]
     Active Substance: PREDNISOLONE
     Dosage: SIX 5MG TABS ONCE DAILY (TAKEN IN MORNING)FOR 14 DAYS THEN FOUR TABS DAILY FOR SIX WEEKS; TABLET
     Route: 048
     Dates: end: 20200312
  2. OMEPRAZOLE. [Concomitant]
     Active Substance: OMEPRAZOLE
  3. ACIDEX [Concomitant]
     Active Substance: CALCIUM CARBONATE\SODIUM ALGINATE\SODIUM BICARBONATE
  4. CASSIA [Concomitant]
  5. FYBOGEL [Concomitant]
     Active Substance: PLANTAGO OVATA SEED
  6. PREDNISOLONE. [Suspect]
     Active Substance: PREDNISOLONE
     Indication: PULMONARY FIBROSIS
     Dosage: SIX 5MG TABS ONCE DAILY (TAKEN IN MORNING)FOR 14 DAYS THEN FOUR TABS DAILY FOR SIX WEEKS; TABLET
     Route: 048
  7. FUROSEMIDE. [Concomitant]
     Active Substance: FUROSEMIDE
  8. MST CONTINUS [Concomitant]
     Active Substance: MORPHINE SULFATE
  9. PARACETAMOL [Concomitant]
     Active Substance: ACETAMINOPHEN
  10. ORAMORPH [Concomitant]
     Active Substance: MORPHINE SULFATE

REACTIONS (4)
  - Disturbance in attention [Not Recovered/Not Resolved]
  - Tension [Not Recovered/Not Resolved]
  - Feeling abnormal [Not Recovered/Not Resolved]
  - Anxiety [Not Recovered/Not Resolved]

NARRATIVE: CASE EVENT DATE: 20200312
